FAERS Safety Report 6314990-3 (Version None)
Quarter: 2009Q3

REPORT INFORMATION
  Report Type: 
  Country: None (occurrence: None)
  Receive Date: 20090819
  Receipt Date: 20090811
  Transmission Date: 20100115
  Serious: Yes (Other)
  Sender: FDA-Public Use
  Company Number: B0588935A

PATIENT
  Age: 73 Year
  Sex: Female

DRUGS (1)
  1. ZELITREX [Suspect]
     Indication: HERPES VIRUS INFECTION
     Route: 048
     Dates: start: 20090101

REACTIONS (8)
  - AGEUSIA [None]
  - ALOPECIA [None]
  - ANOSMIA [None]
  - DISTURBANCE IN ATTENTION [None]
  - DRY MOUTH [None]
  - DYSARTHRIA [None]
  - NAUSEA [None]
  - POOR QUALITY SLEEP [None]
